FAERS Safety Report 6458990-1 (Version None)
Quarter: 2009Q4

REPORT INFORMATION
  Report Type: 
  Country: None (occurrence: None)
  Receive Date: 20091127
  Receipt Date: 20091119
  Transmission Date: 20100525
  Serious: Yes (Other)
  Sender: FDA-Public Use
  Company Number: JP-BAYER-200911275BYL

PATIENT
  Age: 69 Year
  Sex: Male

DRUGS (12)
  1. NEXAVAR [Suspect]
     Indication: RENAL CELL CARCINOMA
     Dosage: TOTAL DAILY DOSE: 800 MG  UNIT DOSE: 200 MG
     Route: 048
     Dates: start: 20090113, end: 20090313
  2. NEXAVAR [Suspect]
     Dosage: UNIT DOSE: 200 MG
     Route: 048
     Dates: start: 20090413, end: 20090818
  3. NEXAVAR [Suspect]
     Dosage: UNIT DOSE: 200 MG
     Route: 048
     Dates: start: 20090406, end: 20090412
  4. NEXAVAR [Suspect]
     Dosage: UNIT DOSE: 200 MG
     Route: 048
     Dates: start: 20090916
  5. NEXAVAR [Suspect]
     Dosage: UNIT DOSE: 200 MG
     Route: 048
     Dates: start: 20090819, end: 20090915
  6. SPLENDIL [Concomitant]
     Route: 048
  7. ALMARL [Concomitant]
     Route: 048
  8. FERRUM [Concomitant]
     Route: 048
     Dates: start: 20090113
  9. THYRADIN S [Concomitant]
     Indication: HYPOTHYROIDISM
     Dosage: UNIT DOSE: 50 ?G
     Route: 048
     Dates: start: 20090120, end: 20090215
  10. ADONA [Concomitant]
     Dosage: UNIT DOSE: 30 MG
     Route: 048
     Dates: start: 20090204
  11. TRANSAMIN [Concomitant]
     Route: 048
     Dates: start: 20090204
  12. LAMISIL [Concomitant]
     Route: 061
     Dates: start: 20090227

REACTIONS (3)
  - HEPATIC FUNCTION ABNORMAL [None]
  - HYPERTENSION [None]
  - HYPOTHYROIDISM [None]
